FAERS Safety Report 9080373 (Version 1)
Quarter: 2013Q1

REPORT INFORMATION
  Report Type: Spontaneous
  Country: AU (occurrence: AU)
  Receive Date: 20130130
  Receipt Date: 20130130
  Transmission Date: 20140127
  Serious: Yes (Other)
  Sender: FDA-Public Use
  Company Number: AU-ROCHE-1181208

PATIENT
  Sex: Female

DRUGS (1)
  1. LUCENTIS [Suspect]
     Indication: AGE-RELATED MACULAR DEGENERATION
     Route: 050
     Dates: start: 201212

REACTIONS (7)
  - Myocardial ischaemia [Unknown]
  - Muscle tightness [Unknown]
  - Visual acuity reduced [Unknown]
  - Vein discolouration [Unknown]
  - Muscular weakness [Unknown]
  - Vein discolouration [Unknown]
  - Limb discomfort [Unknown]
